APPROVED DRUG PRODUCT: ALBUTEROL SULFATE
Active Ingredient: ALBUTEROL SULFATE
Strength: EQ 2MG BASE/5ML
Dosage Form/Route: SYRUP;ORAL
Application: A074302 | Product #001
Applicant: MOVA PHARMACEUTICALS CORP
Approved: Sep 30, 1994 | RLD: No | RS: No | Type: DISCN